FAERS Safety Report 4876187-3 (Version None)
Quarter: 2006Q1

REPORT INFORMATION
  Report Type: 
  Country: None (occurrence: None)
  Receive Date: 20060106
  Receipt Date: 20051220
  Transmission Date: 20060701
  Serious: Yes (Hospitalization, Other)
  Sender: FDA-Public Use
  Company Number: US_030997368

PATIENT
  Age: 78 Year
  Sex: Male
  Weight: 82.7 kg

DRUGS (17)
  1. LY231514(PEMETREXED) VIAL [Suspect]
     Indication: MESOTHELIOMA
     Dosage: 500 MG/M2, OTHER, INTRAVENOUS
     Route: 042
     Dates: start: 20030605, end: 20031223
  2. GEMCITABINE HYDROCHLORIDE (GEMCITABINE HYDROCHLORIDE) [Suspect]
     Indication: MESOTHELIOMA
     Dosage: 1250 MG/M2, OTHER, INTRAVENOUS
     Route: 042
     Dates: start: 20030605, end: 20031223
  3. PROTONIX [Concomitant]
  4. CARDIZEM CD [Concomitant]
  5. FOLIC ACID [Concomitant]
  6. VITAMIN B12 [Concomitant]
  7. SYNTHROID [Concomitant]
  8. DIBENZYLINE [Concomitant]
  9. DELSYM [Concomitant]
  10. DECADRON [Concomitant]
  11. COUMADIN [Concomitant]
  12. FLONASE [Concomitant]
  13. MAXAIR [Concomitant]
  14. TESSALON [Concomitant]
  15. LASIX (FUROSEIDE) [Concomitant]
  16. ALDACTONE [Concomitant]
  17. ADVAIR DISKUS 250/50 [Concomitant]

REACTIONS (7)
  - DEEP VEIN THROMBOSIS [None]
  - DRUG ERUPTION [None]
  - INTERNATIONAL NORMALISED RATIO INCREASED [None]
  - OEDEMA PERIPHERAL [None]
  - PULMONARY EMBOLISM [None]
  - PYREXIA [None]
  - SKIN TOXICITY [None]
